FAERS Safety Report 6660506-1 (Version None)
Quarter: 2010Q1

REPORT INFORMATION
  Report Type: 
  Country: None (occurrence: None)
  Receive Date: 20100331
  Receipt Date: 20100326
  Transmission Date: 20100710
  Serious: Yes (Other)
  Sender: FDA-Public Use
  Company Number: US-B.I. PHARMACEUTICALS,INC./RIDGEFIELD-2010-BP-03560BP

PATIENT
  Sex: Male

DRUGS (7)
  1. COMBIVENT [Suspect]
     Indication: CHRONIC OBSTRUCTIVE PULMONARY DISEASE
     Dosage: 4 PUF
     Route: 055
     Dates: start: 20030101
  2. NEBULIZER [Concomitant]
     Indication: LUNG NEOPLASM MALIGNANT
  3. ASPIRIN [Concomitant]
     Indication: PROPHYLAXIS
  4. NEXIUM [Concomitant]
     Indication: ABDOMINAL DISCOMFORT
     Dosage: 40 MG
  5. VYTORIN [Concomitant]
     Indication: HYPERTENSION
  6. VYTORIN [Concomitant]
     Indication: BLOOD CHOLESTEROL INCREASED
  7. NORVASC [Concomitant]
     Indication: HYPERTENSION
     Dosage: 5 MG

REACTIONS (1)
  - LUNG NEOPLASM MALIGNANT [None]
